FAERS Safety Report 8834809 (Version 17)
Quarter: 2016Q1

REPORT INFORMATION
  Report Type: Spontaneous
  Country: US (occurrence: US)
  Receive Date: 20121010
  Receipt Date: 20160304
  Transmission Date: 20160526
  Serious: Yes (Hospitalization, Other)
  Sender: FDA-Public Use
  Company Number: US-GLAXOSMITHKLINE-A0996745A

PATIENT
  Age: 66 Year
  Sex: Female

DRUGS (22)
  1. FLOLAN [Suspect]
     Active Substance: EPOPROSTENOL SODIUM
     Dosage: UNK
     Dates: start: 20090321
  2. FLOLAN [Suspect]
     Active Substance: EPOPROSTENOL SODIUM
     Dosage: 35.4 DF, UNK
     Dates: start: 20090327
  3. FLOLAN [Suspect]
     Active Substance: EPOPROSTENOL SODIUM
     Dosage: UNK
  4. FLOLAN [Suspect]
     Active Substance: EPOPROSTENOL SODIUM
     Dosage: UNK
  5. FLOLAN [Suspect]
     Active Substance: EPOPROSTENOL SODIUM
     Dosage: UNK
  6. CIPRO [Suspect]
     Active Substance: CIPROFLOXACIN HYDROCHLORIDE
     Indication: SINUSITIS
     Dosage: 500 MG, UNKNOWN DOSING
     Route: 065
  7. FLOLAN [Suspect]
     Active Substance: EPOPROSTENOL SODIUM
     Dosage: UNK
     Dates: start: 20090321
  8. FLOLAN [Suspect]
     Active Substance: EPOPROSTENOL SODIUM
     Dosage: 35.4 NG/KG/MIN
     Route: 042
  9. FLOLAN [Suspect]
     Active Substance: EPOPROSTENOL SODIUM
     Dosage: 22 DF, CO
     Route: 042
  10. FLOLAN [Suspect]
     Active Substance: EPOPROSTENOL SODIUM
     Dosage: 30.1 NG/KG/MIN CONTINUOUSLY
     Dates: start: 20090327, end: 20160226
  11. FLOLAN [Suspect]
     Active Substance: EPOPROSTENOL SODIUM
     Dosage: UNK
     Dates: start: 20090321
  12. ADCIRCA [Concomitant]
     Active Substance: TADALAFIL
  13. FLOLAN [Suspect]
     Active Substance: EPOPROSTENOL SODIUM
     Dosage: UNK
     Dates: start: 20090321
  14. FLOLAN [Suspect]
     Active Substance: EPOPROSTENOL SODIUM
     Dosage: 35.4 NG/KG/MIN CONTINUOUS; CONCENTRATION: 60,000 NG/ML; PUMP RATE: 66 ML/DAY; VIAL STRENGTH: 1.5 MG
     Route: 042
     Dates: start: 20090321
  15. FLOLAN [Suspect]
     Active Substance: EPOPROSTENOL SODIUM
     Dosage: UNK, CO
     Route: 042
  16. FLOLAN [Suspect]
     Active Substance: EPOPROSTENOL SODIUM
     Dosage: 35.4 NG/KG/MIN CONTINUOUSLY
  17. FLOLAN [Suspect]
     Active Substance: EPOPROSTENOL SODIUM
     Dosage: UNK
  18. FLOLAN [Suspect]
     Active Substance: EPOPROSTENOL SODIUM
     Dosage: 35.4 NG/KG/MIN (CONCENTRATION 60,000 NG/ML, PUMP RATE 66 ML/DAY, VIAL STRENGTH 1.5 MG), CO
     Route: 042
  19. AVANDIA [Concomitant]
     Active Substance: ROSIGLITAZONE MALEATE
  20. FLOLAN [Suspect]
     Active Substance: EPOPROSTENOL SODIUM
     Indication: PULMONARY ARTERIAL HYPERTENSION
     Dosage: DOSE: 34 NG/KG/MINCONCENTRATION: 60,000 NG/MLVIAL STRENGTH: 1.5 MGDOSE: 35.44 NG/KG/MINDOSE: 65[...]
     Route: 042
     Dates: start: 20090321
  21. FLOLAN [Suspect]
     Active Substance: EPOPROSTENOL SODIUM
     Dosage: UNK
     Dates: start: 20090321
  22. FLOLAN [Suspect]
     Active Substance: EPOPROSTENOL SODIUM
     Dosage: UNK

REACTIONS (39)
  - Diarrhoea [Unknown]
  - Abdominal distension [Not Recovered/Not Resolved]
  - Vomiting [Not Recovered/Not Resolved]
  - Urinary tract infection [Unknown]
  - Headache [Unknown]
  - Hospice care [Unknown]
  - Incorrect dose administered [Unknown]
  - Limb injury [Unknown]
  - Cystitis [Recovered/Resolved]
  - Pulmonary hypertension [Unknown]
  - Malaise [Unknown]
  - Dizziness [Not Recovered/Not Resolved]
  - Palpitations [Unknown]
  - Fall [Unknown]
  - Localised infection [Not Recovered/Not Resolved]
  - Upper respiratory tract infection [Unknown]
  - Therapy cessation [Unknown]
  - Deafness [Unknown]
  - Flatulence [Not Recovered/Not Resolved]
  - Dyspnoea exertional [Not Recovered/Not Resolved]
  - Peripheral swelling [Not Recovered/Not Resolved]
  - Drug administration error [Unknown]
  - Femur fracture [Unknown]
  - Flushing [Not Recovered/Not Resolved]
  - Ulcer [Unknown]
  - Oropharyngeal pain [Unknown]
  - Fatigue [Unknown]
  - Weight decreased [Unknown]
  - Pharyngitis [Unknown]
  - Influenza [Recovering/Resolving]
  - Haemoglobin decreased [Unknown]
  - Pain in jaw [Not Recovered/Not Resolved]
  - Decreased appetite [Unknown]
  - Nausea [Unknown]
  - Gastric infection [Unknown]
  - Dehydration [Unknown]
  - Feeling abnormal [Unknown]
  - Sinusitis [Not Recovered/Not Resolved]
  - Herpes zoster [Not Recovered/Not Resolved]

NARRATIVE: CASE EVENT DATE: 20121001
